FAERS Safety Report 9778609 (Version 1)
Quarter: 2013Q4

REPORT INFORMATION
  Report Type: Spontaneous
  Country: GB (occurrence: GB)
  Receive Date: 20131223
  Receipt Date: 20131223
  Transmission Date: 20140711
  Serious: Yes (Hospitalization, Congenital Anomaly, Other)
  Sender: FDA-Public Use
  Company Number: PHHY2013GB147099

PATIENT
  Age: 1 Year
  Sex: Male
  Weight: 3.4 kg

DRUGS (18)
  1. SYNTOMETRINE [Suspect]
     Route: 064
  2. HALOPERIDOL [Suspect]
     Route: 064
  3. HALOPERIDOL [Suspect]
     Dosage: UNK MG, BID
     Route: 064
     Dates: start: 20111229, end: 20120104
  4. HALOPERIDOL [Suspect]
     Dosage: UNK MG, TID
     Route: 064
     Dates: start: 20120105, end: 20120109
  5. SENNOSIDES A AND B [Suspect]
     Route: 064
  6. OLANZAPINE [Suspect]
     Route: 064
  7. RISPERDAL [Suspect]
     Indication: SCHIZOPHRENIA, PARANOID TYPE
     Dosage: UNK UNK, BID
     Route: 064
  8. RISPERDAL [Suspect]
     Dosage: UNK MG, BID
     Route: 064
     Dates: start: 20120308, end: 20120609
  9. RISPERDAL [Suspect]
     Dosage: UNK
     Route: 064
     Dates: start: 20120221, end: 20120307
  10. RISPERDAL [Suspect]
     Dosage: UNK MG, UNK
     Route: 064
     Dates: start: 20120609, end: 20120821
  11. PROMETHAZINE [Suspect]
     Dosage: UNK UNK, QD
     Route: 064
     Dates: start: 20111216
  12. CYCLIZINE [Suspect]
     Route: 064
  13. CYCLIZINE [Suspect]
     Route: 064
     Dates: start: 20111228, end: 20120131
  14. CHLORPROMAZINE [Suspect]
     Route: 064
  15. CHLORPROMAZINE [Suspect]
     Dosage: UNK
     Route: 064
  16. ZOPICLONE [Suspect]
     Dosage: 15 MG, UNK
     Route: 064
  17. ALCOHOL [Suspect]
     Route: 064
  18. ENTONOX [Suspect]
     Route: 064

REACTIONS (5)
  - Foetal alcohol syndrome [Unknown]
  - Dextrocardia [Unknown]
  - Visual impairment [Unknown]
  - Drug withdrawal syndrome [Unknown]
  - Foetal exposure during pregnancy [Recovered/Resolved]
